FAERS Safety Report 17545765 (Version 1)
Quarter: 2020Q1

REPORT INFORMATION
  Report Type: Spontaneous
  Country: US (occurrence: US)
  Receive Date: 20200306
  Receipt Date: 20200306
  Transmission Date: 20200409
  Serious: Yes (Hospitalization)
  Sender: FDA-Public Use
  Company Number: None

PATIENT
  Age: 54 Year
  Sex: Female

DRUGS (1)
  1. ISOSULFAN BLUE/POTASSIUM PHOSP HATE/SODIUM PHOSPHATE (ISOSULFAN BLUE 1%) [Suspect]
     Active Substance: ISOSULFAN BLUE
     Dates: start: 20190920

REACTIONS (3)
  - Hypotension [None]
  - Bradycardia [None]
  - Anaphylactic reaction [None]

NARRATIVE: CASE EVENT DATE: 20190924
